FAERS Safety Report 16544012 (Version 1)
Quarter: 2019Q3

REPORT INFORMATION
  Report Type: Spontaneous
  Country: US (occurrence: US)
  Receive Date: 20190709
  Receipt Date: 20190709
  Transmission Date: 20191004
  Serious: Yes (Other)
  Sender: FDA-Public Use
  Company Number: US-SA-2019SA174570

PATIENT
  Age: 68 Year
  Sex: Male

DRUGS (1)
  1. LANTUS SOLOSTAR [Suspect]
     Active Substance: INSULIN GLARGINE
     Indication: TYPE 2 DIABETES MELLITUS
     Dosage: 80 U, IN THE AM AND PM
     Route: 058

REACTIONS (5)
  - Inappropriate schedule of product administration [Unknown]
  - Oesophageal carcinoma [Unknown]
  - Hepatic cancer [Unknown]
  - Incorrect dose administered by device [Unknown]
  - Device breakage [Unknown]
